FAERS Safety Report 6181763-4 (Version None)
Quarter: 2009Q2

REPORT INFORMATION
  Report Type: 
  Country: None (occurrence: None)
  Receive Date: 20090501
  Receipt Date: 20090416
  Transmission Date: 20091009
  Serious: Yes (Hospitalization)
  Sender: FDA-Public Use
  Company Number: 2009S1006607

PATIENT
  Sex: Male

DRUGS (2)
  1. PRAMIN (METOCLOPRAMIDE) (10 MG) [Suspect]
     Indication: VOMITING IN PREGNANCY
     Dosage: 10 MG;Q6H;TRANSPLACENTAL
     Route: 064
     Dates: start: 20080626, end: 20080601
  2. ESCITALOPRAM [Suspect]
     Indication: DEPRESSION
     Dosage: 10 MG;DAILY;TRANSPLACENTAL
     Route: 064
     Dates: start: 20080101

REACTIONS (5)
  - JAUNDICE NEONATAL [None]
  - MATERNAL DRUGS AFFECTING FOETUS [None]
  - NEONATAL INFECTION [None]
  - PREMATURE LABOUR [None]
  - TEMPERATURE REGULATION DISORDER [None]
